FAERS Safety Report 24703883 (Version 1)
Quarter: 2024Q4

REPORT INFORMATION
  Report Type: Spontaneous
  Country: US (occurrence: US)
  Receive Date: 20241206
  Receipt Date: 20241206
  Transmission Date: 20250115
  Serious: Yes (Life-Threatening, Hospitalization, Other)
  Sender: AUROBINDO
  Company Number: US-MLMSERVICE-20241115-PI257963-00050-1

PATIENT
  Age: 47 Year
  Sex: Male

DRUGS (1)
  1. AMLODIPINE [Suspect]
     Active Substance: AMLODIPINE BESYLATE
     Indication: Product used for unknown indication
     Dosage: 900 MILLIGRAM
     Route: 065

REACTIONS (11)
  - Distributive shock [Unknown]
  - Respiratory failure [Unknown]
  - Electrocardiogram ST segment depression [Unknown]
  - Acute kidney injury [Unknown]
  - Acute respiratory distress syndrome [Unknown]
  - Vasoplegia syndrome [Unknown]
  - Metabolic disorder [Unknown]
  - Peripheral ischaemia [Unknown]
  - Hyperglycaemia [Unknown]
  - Toxicity to various agents [Unknown]
  - Intentional overdose [Unknown]
